FAERS Safety Report 9397152 (Version 1)
Quarter: 2013Q3

REPORT INFORMATION
  Report Type: Spontaneous
  Country: US (occurrence: US)
  Receive Date: 20130712
  Receipt Date: 20130712
  Transmission Date: 20140515
  Serious: Yes (Other)
  Sender: FDA-Public Use
  Company Number: PHEH2013US014596

PATIENT
  Sex: 0

DRUGS (2)
  1. GLEEVEC [Suspect]
     Indication: CHRONIC MYELOID LEUKAEMIA
     Dosage: UNK UKN, UNK
  2. TASIGNA [Suspect]
     Dosage: UNK UKN, UNK

REACTIONS (2)
  - Ejection fraction decreased [Unknown]
  - Cardiac failure [Unknown]
